FAERS Safety Report 7357286-3 (Version None)
Quarter: 2011Q1

REPORT INFORMATION
  Report Type: 
  Country: None (occurrence: None)
  Receive Date: 20110311
  Receipt Date: 20110311
  Transmission Date: 20110831
  Serious: Yes (Hospitalization)
  Sender: FDA-Public Use
  Company Number: None

PATIENT
  Age: 63 Year
  Sex: Female
  Weight: 61.2356 kg

DRUGS (7)
  1. SYMBICORT [Suspect]
     Indication: PNEUMONIA
     Dosage: 2 PUFFS BID PO
     Route: 048
     Dates: start: 20110220, end: 20110220
  2. SYMBICORT [Suspect]
     Indication: BRONCHITIS
     Dosage: 2 PUFFS BID PO
     Route: 048
     Dates: start: 20110220, end: 20110220
  3. PREDNISONE [Concomitant]
  4. SYMBICORT [Concomitant]
  5. LEVOQIN [Concomitant]
  6. ROCEPHIN [Concomitant]
  7. CIPRO [Concomitant]

REACTIONS (4)
  - WHEEZING [None]
  - DYSPNOEA [None]
  - STRIDOR [None]
  - OXYGEN SATURATION DECREASED [None]
